FAERS Safety Report 9616788 (Version 2)
Quarter: 2013Q4

REPORT INFORMATION
  Report Type: Spontaneous
  Country: US (occurrence: US)
  Receive Date: 20131011
  Receipt Date: 20131107
  Transmission Date: 20140711
  Serious: No
  Sender: FDA-Public Use
  Company Number: US-009507513-1310USA004083

PATIENT
  Age: 79 Year
  Sex: Female

DRUGS (7)
  1. SINGULAIR [Suspect]
     Dosage: UNK
     Route: 048
  2. FORADIL [Suspect]
     Indication: ASTHMA
     Dosage: UNK, BID, INHALER
     Route: 055
     Dates: start: 2005
  3. HYZAAR [Concomitant]
     Route: 048
  4. INDERAL [Concomitant]
  5. VITAMIN D (UNSPECIFIED) [Concomitant]
  6. LASIX (FUROSEMIDE) [Concomitant]
  7. PREMARIN [Concomitant]

REACTIONS (2)
  - Asthma [Not Recovered/Not Resolved]
  - Dyspnoea [Not Recovered/Not Resolved]
